FAERS Safety Report 4660207-5 (Version None)
Quarter: 2005Q2

REPORT INFORMATION
  Report Type: 
  Country: None (occurrence: None)
  Receive Date: 20050512
  Receipt Date: 20050429
  Transmission Date: 20051028
  Serious: Yes (Life-Threatening)
  Sender: FDA-Public Use
  Company Number: FR-JNJFOC-20050500334

PATIENT
  Age: 57 Year
  Sex: Male

DRUGS (5)
  1. REMICADE [Suspect]
     Indication: ANKYLOSING SPONDYLITIS
     Dosage: 5MG/KG
     Route: 042
  2. CHRONO INDOCID [Concomitant]
     Route: 049
  3. SOTALOL HCL [Concomitant]
     Route: 049
  4. MORPAL [Concomitant]
     Route: 049
  5. ZYLORIC [Concomitant]
     Route: 049

REACTIONS (1)
  - OESOPHAGEAL CARCINOMA [None]
